FAERS Safety Report 6436418-5 (Version None)
Quarter: 2009Q4

REPORT INFORMATION
  Report Type: 
  Country: None (occurrence: None)
  Receive Date: 20091110
  Receipt Date: 20091110
  Transmission Date: 20100525
  Serious: Yes (Other)
  Sender: FDA-Public Use
  Company Number: None

PATIENT
  Age: 55 Year
  Sex: Female
  Weight: 74.8435 kg

DRUGS (3)
  1. CEPHALEXIN [Suspect]
     Indication: DEVICE RELATED INFECTION
     Dosage: 1000MG 3X DAILY PO
     Route: 048
     Dates: start: 20090904, end: 20091012
  2. CEPHALEXIN [Suspect]
     Indication: STAPHYLOCOCCAL INFECTION
     Dosage: 1000MG 3X DAILY PO
     Route: 048
     Dates: start: 20090904, end: 20091012
  3. CEPHALEXIN [Suspect]
     Indication: PROPHYLAXIS
     Dosage: 500 MG 3 X DAILY PO
     Route: 048
     Dates: start: 20091013, end: 20091109

REACTIONS (4)
  - ALOPECIA [None]
  - FEELING HOT [None]
  - PRURITUS [None]
  - TENDERNESS [None]
